FAERS Safety Report 5928497-6 (Version None)
Quarter: 2008Q4

REPORT INFORMATION
  Report Type: 
  Country: None (occurrence: None)
  Receive Date: 20081023
  Receipt Date: 20081013
  Transmission Date: 20090506
  Serious: Yes (Hospitalization, Other)
  Sender: FDA-Public Use
  Company Number: US-ABBOTT-08P-163-0481303-00

PATIENT
  Sex: Male

DRUGS (3)
  1. HUMIRA [Suspect]
     Indication: CROHN'S DISEASE
     Route: 058
     Dates: start: 20080101
  2. HUMIRA [Suspect]
     Dosage: 160 MG ONCE
     Route: 058
     Dates: start: 20081013, end: 20081013
  3. HUMIRA [Suspect]

REACTIONS (2)
  - INJECTION SITE HAEMORRHAGE [None]
  - INTESTINAL RESECTION [None]
